FAERS Safety Report 4550496-X (Version None)
Quarter: 2004Q4

REPORT INFORMATION
  Report Type: 
  Country: None (occurrence: None)
  Receive Date: 20041227
  Receipt Date: 20041116
  Transmission Date: 20050328
  Serious: No
  Sender: FDA-Public Use
  Company Number: 04P-163-0280685-00

PATIENT
  Age: 59 Year
  Sex: Male
  Weight: 105 kg

DRUGS (8)
  1. HUMIRA [Suspect]
     Indication: RHEUMATOID ARTHRITIS
     Dosage: 40 MG, 1 IN 2 WK, SUBCUTANEOUS
     Route: 058
     Dates: start: 20041109
  2. PREDNISONE [Concomitant]
  3. HYDROCHLOROTHIAZIDE [Concomitant]
  4. FLUOXETINE HYDROCHLORIDE [Concomitant]
  5. INDOMETHACIN [Concomitant]
  6. FOLIC ACID [Concomitant]
  7. MULTIVITAMIN [Concomitant]
  8. ZETIA [Concomitant]

REACTIONS (4)
  - ASTHENIA [None]
  - CONDITION AGGRAVATED [None]
  - FATIGUE [None]
  - HYPOAESTHESIA [None]
